FAERS Safety Report 7823550 (Version 3)
Quarter: 2025Q3

REPORT INFORMATION
  Report Type: Spontaneous
  Country: CN (occurrence: CN)
  Receive Date: 20110223
  Receipt Date: 20250826
  Transmission Date: 20251021
  Serious: Yes (Death, Other)
  Sender: MERCK SHARP & DOHME LLC
  Company Number: CN-MERCK-1102CHN00009

PATIENT
  Age: 56 Year
  Sex: Male

DRUGS (2)
  1. CASPOFUNGIN ACETATE [Suspect]
     Active Substance: CASPOFUNGIN ACETATE
     Indication: Aspergillus infection
     Dosage: DOSE DESCRIPTION : 50 MG, QD?DAILY DOSE : 50 MILLIGRAM
     Route: 042
  2. VORICONAZOLE [Concomitant]
     Active Substance: VORICONAZOLE
     Indication: Aspergillus infection
     Dosage: DOSE DESCRIPTION : 200 MG, BID?DAILY DOSE : 400 MILLIGRAM
     Route: 041

REACTIONS (3)
  - Cerebral aspergillosis [Fatal]
  - Headache [Not Recovered/Not Resolved]
  - Coma [Fatal]
